FAERS Safety Report 12455906 (Version 1)
Quarter: 2016Q2

REPORT INFORMATION
  Report Type: Spontaneous
  Country: JP (occurrence: JP)
  Receive Date: 20160610
  Receipt Date: 20160610
  Transmission Date: 20160815
  Serious: Yes (Hospitalization)
  Sender: FDA-Public Use
  Company Number: JP-SA-2016SA106799

PATIENT
  Age: 82 Year
  Sex: Female

DRUGS (10)
  1. SAMSCA [Concomitant]
     Active Substance: TOLVAPTAN
  2. ARTIST [Concomitant]
     Active Substance: CARVEDILOL
  3. WARFARIN [Concomitant]
     Active Substance: WARFARIN
     Dates: end: 20150630
  4. AMLODIN [Concomitant]
     Active Substance: AMLODIPINE BESYLATE
  5. DIART [Concomitant]
     Active Substance: AZOSEMIDE
  6. PLAVIX [Suspect]
     Active Substance: CLOPIDOGREL BISULFATE
     Indication: CORONARY ARTERIAL STENT INSERTION
     Route: 048
     Dates: start: 20101006, end: 20150627
  7. ASPIRIN. [Concomitant]
     Active Substance: ASPIRIN
     Dates: start: 20101004, end: 20150427
  8. ASPIRIN. [Concomitant]
     Active Substance: ASPIRIN
     Dosage: DOSE: 100 OR 200 MG/DAY
     Dates: start: 20150428, end: 20150501
  9. FUROSEMIDE. [Concomitant]
     Active Substance: FUROSEMIDE
     Dates: end: 20150626
  10. OLMETEC [Concomitant]
     Active Substance: OLMESARTAN MEDOXOMIL

REACTIONS (1)
  - Cardiac failure [Recovered/Resolved]

NARRATIVE: CASE EVENT DATE: 20150427
